FAERS Safety Report 8378330-0 (Version None)
Quarter: 2012Q2

REPORT INFORMATION
  Report Type: 
  Country: None (occurrence: None)
  Receive Date: 20120521
  Receipt Date: 20120515
  Transmission Date: 20120825
  Serious: Yes (Other)
  Sender: FDA-Public Use
  Company Number: GER/UKI/12/0024339

PATIENT
  Age: 69 Year
  Sex: Female
  Weight: 63 kg

DRUGS (5)
  1. FLUOXETINE [Concomitant]
  2. OMEPRAZOLE [Suspect]
     Indication: PRODUCT USED FOR UNKNOWN INDICATION
     Dates: start: 20120503
  3. ATORVASTATIN [Concomitant]
  4. IBUPROFEN [Concomitant]
  5. ZOPICLONE (ZOPICLONE) [Concomitant]

REACTIONS (2)
  - LIP BLISTER [None]
  - LIP ULCERATION [None]
